FAERS Safety Report 6698391-4 (Version None)
Quarter: 2010Q2

REPORT INFORMATION
  Report Type: 
  Country: None (occurrence: None)
  Receive Date: 20100426
  Receipt Date: 20100426
  Transmission Date: 20101027
  Serious: Yes (Life-Threatening, Hospitalization)
  Sender: FDA-Public Use
  Company Number: None

PATIENT
  Sex: Male
  Weight: 15.4223 kg

DRUGS (2)
  1. TYLENOL W/ CODEINE [Suspect]
     Indication: ADENOIDECTOMY
     Dosage: 1 TO 1.5 TEASPOON 4-6 HOURS PO
     Route: 048
     Dates: start: 20100304, end: 20100307
  2. TYLENOL W/ CODEINE [Suspect]
     Indication: TONSILLECTOMY
     Dosage: 1 TO 1.5 TEASPOON 4-6 HOURS PO
     Route: 048
     Dates: start: 20100304, end: 20100307

REACTIONS (8)
  - ABDOMINAL PAIN UPPER [None]
  - CRYING [None]
  - DYSPNOEA [None]
  - LOSS OF CONSCIOUSNESS [None]
  - PANIC ATTACK [None]
  - PYREXIA [None]
  - TACHYPNOEA [None]
  - WHEEZING [None]
